FAERS Safety Report 13139777 (Version 1)
Quarter: 2017Q1

REPORT INFORMATION
  Report Type: Report from Study
  Country: JP (occurrence: JP)
  Receive Date: 20170123
  Receipt Date: 20170123
  Transmission Date: 20170428
  Serious: Yes (Hospitalization, Other)
  Sender: FDA-Public Use
  Company Number: JP-ACTELION-A-CH2017-148392

PATIENT
  Sex: Male

DRUGS (23)
  1. EPOPROSTENOL ACT [Suspect]
     Active Substance: EPOPROSTENOL
     Dosage: 55.3 ?G/KG, PER MIN
     Route: 042
     Dates: start: 20160516
  2. REVATIO [Suspect]
     Active Substance: SILDENAFIL CITRATE
     Indication: PULMONARY ARTERIAL HYPERTENSION
     Dosage: 10 MG, TID
     Route: 048
     Dates: start: 20160329, end: 20160404
  3. OPSUMIT [Suspect]
     Active Substance: MACITENTAN
     Indication: PULMONARY ARTERIAL HYPERTENSION
     Dosage: 10 MG, UNK
     Route: 048
     Dates: start: 20150731
  4. GLUCONSAN K [Concomitant]
  5. LANSOPRAZOLE. [Concomitant]
     Active Substance: LANSOPRAZOLE
  6. THYRADIN S [Concomitant]
     Active Substance: LEVOTHYROXINE SODIUM
  7. EPOPROSTENOL ACT [Suspect]
     Active Substance: EPOPROSTENOL
     Indication: PULMONARY ARTERIAL HYPERTENSION
     Dosage: 46.72 ?G/KG, PER MIN
     Route: 042
     Dates: end: 20160313
  8. TRANSAMIN [Concomitant]
     Active Substance: TRANEXAMIC ACID
  9. ADONA [Concomitant]
     Active Substance: CARBAZOCHROME SODIUM SULFONATE
  10. EPOPROSTENOL ACT [Suspect]
     Active Substance: EPOPROSTENOL
     Dosage: 49.23 ?G/KG, PER MIN
     Route: 042
     Dates: start: 20160314
  11. REVATIO [Suspect]
     Active Substance: SILDENAFIL CITRATE
     Dosage: 20 MG, TID
     Route: 048
     Dates: start: 20160419
  12. LUPRAC [Concomitant]
     Active Substance: TORSEMIDE
  13. SPIRONOLACTONE. [Concomitant]
     Active Substance: SPIRONOLACTONE
  14. FEBURIC [Concomitant]
     Active Substance: FEBUXOSTAT
  15. BAKTAR [Concomitant]
     Active Substance: SULFAMETHOXAZOLE\TRIMETHOPRIM
  16. PRIMPERAN [Concomitant]
     Active Substance: METOCLOPRAMIDE HYDROCHLORIDE
  17. EPOPROSTENOL ACT [Suspect]
     Active Substance: EPOPROSTENOL
     Dosage: 53.8 ?G/KG, PER MIN
     Route: 042
     Dates: end: 20160515
  18. REVATIO [Suspect]
     Active Substance: SILDENAFIL CITRATE
     Dosage: UNK MG, QD
     Route: 048
     Dates: start: 20160405, end: 20160410
  19. FUROSEMIDE. [Concomitant]
     Active Substance: FUROSEMIDE
  20. OXYGEN. [Concomitant]
     Active Substance: OXYGEN
  21. ADCIRCA [Concomitant]
     Active Substance: TADALAFIL
  22. PREDONINE [Concomitant]
     Active Substance: PREDNISOLONE
  23. BONALON [Concomitant]
     Active Substance: ALENDRONATE SODIUM
     Dosage: 35 MG, UNK

REACTIONS (4)
  - Rash [Recovered/Resolved]
  - Right ventricular failure [Not Recovered/Not Resolved]
  - Platelet transfusion [Unknown]
  - Thrombocytopenia [Recovering/Resolving]

NARRATIVE: CASE EVENT DATE: 201602
